FAERS Safety Report 18957282 (Version 1)
Quarter: 2021Q1

REPORT INFORMATION
  Report Type: Spontaneous
  Country: US (occurrence: US)
  Receive Date: 20210302
  Receipt Date: 20210302
  Transmission Date: 20210420
  Serious: Yes (Other)
  Sender: FDA-Public Use
  Company Number: US-PFIZER INC-2001080934US

PATIENT
  Age: 75 Year
  Sex: Male

DRUGS (22)
  1. CELEBREX [Suspect]
     Active Substance: CELECOXIB
     Dosage: 100 MG, 2X/DAY
     Route: 048
     Dates: start: 19991030, end: 19991103
  2. VITAMIN K [PHYTOMENADIONE] [Concomitant]
     Dosage: UNK
     Route: 065
     Dates: start: 19990722, end: 19990818
  3. VITAMIN K [PHYTOMENADIONE] [Concomitant]
     Dosage: UNK
     Route: 065
     Dates: start: 19990624, end: 19990721
  4. CELEBREX [Interacting]
     Active Substance: CELECOXIB
     Dosage: 100 MG, 2X/DAY
     Route: 048
     Dates: start: 20000103
  5. VITAMIN K [PHYTOMENADIONE] [Concomitant]
     Dosage: UNK
     Route: 065
     Dates: start: 20000208, end: 20000412
  6. VITAMIN K [PHYTOMENADIONE] [Concomitant]
     Dosage: UNK
     Route: 065
     Dates: start: 19990819, end: 19991013
  7. VITAMIN K [PHYTOMENADIONE] [Concomitant]
     Dosage: UNK
     Route: 065
     Dates: start: 20000622, end: 20000723
  8. VITAMIN K [PHYTOMENADIONE] [Concomitant]
     Dosage: UNK
     Route: 065
     Dates: start: 20000724, end: 20000820
  9. VITAMIN K [PHYTOMENADIONE] [Concomitant]
     Dosage: UNK
     Route: 065
     Dates: start: 20000110, end: 20000124
  10. VITAMIN K [PHYTOMENADIONE] [Concomitant]
     Dosage: UNK
     Route: 065
     Dates: start: 19991115, end: 19991212
  11. WARFARIN SODIUM. [Interacting]
     Active Substance: WARFARIN SODIUM
     Indication: PULMONARY EMBOLISM
     Dosage: 17.5 MG, WEEKLY
     Route: 065
     Dates: start: 19990624, end: 20000628
  12. VITAMIN K [PHYTOMENADIONE] [Concomitant]
     Dosage: UNK
     Route: 065
     Dates: start: 20000511, end: 20000621
  13. VITAMIN K [PHYTOMENADIONE] [Concomitant]
     Dosage: UNK
     Route: 065
     Dates: start: 19991213, end: 20000109
  14. VITAMIN K [PHYTOMENADIONE] [Concomitant]
     Dosage: UNK
     Route: 065
     Dates: start: 19991014, end: 19991114
  15. VITAMIN K [PHYTOMENADIONE] [Concomitant]
     Dosage: UNK
     Route: 065
     Dates: start: 20000821, end: 20000925
  16. VITAMIN B?COMPLEX WITH VITAMIN C [ASCORBIC ACID;BIOTIN;CALCIUM PANTOTH [Concomitant]
     Route: 065
  17. VITAMIN B?COMPLEX WITH VITAMIN C [ASCORBIC ACID;BIOTIN;CALCIUM PANTOTH [Concomitant]
     Dosage: UNK
     Route: 065
     Dates: start: 19990629, end: 20000925
  18. WARFARIN SODIUM. [Interacting]
     Active Substance: WARFARIN SODIUM
     Dosage: 14 MG, WEEKLY
     Route: 065
     Dates: start: 20000629, end: 20000925
  19. VITAMIN K [PHYTOMENADIONE] [Concomitant]
     Dosage: UNK
     Route: 065
     Dates: start: 20000413, end: 20000510
  20. AMITRIPTYLINE [Concomitant]
     Active Substance: AMITRIPTYLINE
     Dosage: 25 MG, 1X/DAY (EVERY NIGHT)
     Route: 065
  21. VITAMIN K [PHYTOMENADIONE] [Concomitant]
     Dosage: UNK
     Route: 065
     Dates: start: 20000125, end: 20000207
  22. VITAMIN B?COMPLEX WITH VITAMIN C [ASCORBIC ACID;BIOTIN;CALCIUM PANTOTH [Concomitant]
     Dosage: UNK
     Route: 065
     Dates: start: 19990629, end: 20000925

REACTIONS (4)
  - Haematoma [Unknown]
  - International normalised ratio increased [Unknown]
  - Epistaxis [Recovered/Resolved]
  - Drug interaction [Unknown]

NARRATIVE: CASE EVENT DATE: 20000110
